FAERS Safety Report 23510854 (Version 1)
Quarter: 2024Q1

REPORT INFORMATION
  Report Type: Spontaneous
  Country: NO (occurrence: NO)
  Receive Date: 20240212
  Receipt Date: 20240212
  Transmission Date: 20240410
  Serious: Yes (Hospitalization, Other)
  Sender: FDA-Public Use
  Company Number: None

PATIENT
  Age: 73 Year
  Sex: Female

DRUGS (3)
  1. CYCLOPHOSPHAMIDE [Suspect]
     Active Substance: CYCLOPHOSPHAMIDE
     Indication: Breast cancer
     Dosage: 600 MG/M2, ACCORDING TO THE EC90 PROTOCOL, L01AA01
     Route: 042
     Dates: start: 20240105, end: 20240105
  2. ZIEXTENZO [Suspect]
     Active Substance: PEGFILGRASTIM-BMEZ
     Dosage: UNK
     Route: 065
  3. EPIRUBICIN HYDROCHLORIDE [Suspect]
     Active Substance: EPIRUBICIN HYDROCHLORIDE
     Indication: Breast cancer
     Dosage: 90 MG/M2, ACCORDING TO THE EC90 PROTOCOL, L01DB03, ROUTE OF ADMINISTRATION:  INTRAVENOUS USE, INTRAV
     Route: 050
     Dates: start: 20240105, end: 20240105

REACTIONS (3)
  - Product availability issue [Recovered/Resolved]
  - Antibiotic therapy [Recovered/Resolved]
  - Febrile neutropenia [Recovered/Resolved]

NARRATIVE: CASE EVENT DATE: 20240120
